FAERS Safety Report 14284146 (Version 1)
Quarter: 2017Q4

REPORT INFORMATION
  Report Type: Spontaneous
  Country: US (occurrence: US)
  Receive Date: 20171214
  Receipt Date: 20171214
  Transmission Date: 20180321
  Serious: No
  Sender: FDA-Public Use
  Company Number: US-BAYER-2017-235535

PATIENT
  Age: 84 Year
  Sex: Female
  Weight: 67.98 kg

DRUGS (1)
  1. CLARITIN [Suspect]
     Active Substance: LORATADINE
     Dosage: 1 TABLET DAILY AS NEEDED DOSE
     Route: 048
     Dates: start: 20171129

REACTIONS (5)
  - Product use in unapproved indication [None]
  - Product use in unapproved indication [Unknown]
  - Inappropriate prescribing [Unknown]
  - Muscular weakness [Not Recovered/Not Resolved]
  - Loss of personal independence in daily activities [Not Recovered/Not Resolved]

NARRATIVE: CASE EVENT DATE: 20171129
